FAERS Safety Report 19599757 (Version 1)
Quarter: 2021Q3

REPORT INFORMATION
  Report Type: Spontaneous
  Country: US (occurrence: US)
  Receive Date: 20210723
  Receipt Date: 20210723
  Transmission Date: 20211014
  Serious: Yes (Other)
  Sender: FDA-Public Use
  Company Number: None

PATIENT
  Age: 32 Year
  Sex: Female
  Weight: 96.75 kg

DRUGS (4)
  1. LEVOTHYROXINE. [Concomitant]
     Active Substance: LEVOTHYROXINE
  2. LIOTHYRONINE [Concomitant]
     Active Substance: LIOTHYRONINE
  3. DOXYCYCLINE. [Suspect]
     Active Substance: DOXYCYCLINE
     Indication: EAR INFECTION
     Dosage: ?          QUANTITY:2 CAPSULE(S);?
     Route: 048
  4. SERTRALINE [Concomitant]
     Active Substance: SERTRALINE HYDROCHLORIDE

REACTIONS (2)
  - Anxiety [None]
  - Attention deficit hyperactivity disorder [None]

NARRATIVE: CASE EVENT DATE: 20210712
